FAERS Safety Report 21312715 (Version 1)
Quarter: 2022Q3

REPORT INFORMATION
  Report Type: Spontaneous
  Country: US (occurrence: None)
  Receive Date: 20220908
  Receipt Date: 20220908
  Transmission Date: 20221026
  Serious: Yes (Other)
  Sender: FDA-Public Use
  Company Number: None

PATIENT
  Sex: Female

DRUGS (1)
  1. BELSOMRA [Suspect]
     Active Substance: SUVOREXANT

REACTIONS (2)
  - Initial insomnia [None]
  - Drug ineffective [None]
